FAERS Safety Report 6481072-X (Version None)
Quarter: 2009Q4

REPORT INFORMATION
  Report Type: 
  Country: None (occurrence: None)
  Receive Date: 20091208
  Receipt Date: 20091203
  Transmission Date: 20100525
  Serious: Yes (Death, Other)
  Sender: FDA-Public Use
  Company Number: SE-ABBOTT-09P-150-0610808-00

PATIENT
  Age: 60 Year
  Sex: Male

DRUGS (5)
  1. HUMIRA [Suspect]
     Indication: PSORIASIS
     Route: 058
     Dates: start: 20080408, end: 20090513
  2. HUMIRA [Suspect]
     Indication: PSORIATIC ARTHROPATHY
  3. INSULATARD [Concomitant]
     Indication: DRUG USE FOR UNKNOWN INDICATION
     Route: 050
  4. BETOLVEX [Concomitant]
     Indication: DRUG USE FOR UNKNOWN INDICATION
  5. NOVONORM [Concomitant]
     Indication: DRUG USE FOR UNKNOWN INDICATION

REACTIONS (7)
  - ACUTE MYOCARDIAL INFARCTION [None]
  - DYSPNOEA [None]
  - FALL [None]
  - HYPERTENSION [None]
  - ILL-DEFINED DISORDER [None]
  - NASOPHARYNGITIS [None]
  - PYREXIA [None]
